FAERS Safety Report 14659979 (Version 1)
Quarter: 2018Q1

REPORT INFORMATION
  Report Type: Spontaneous
  Country: FR (occurrence: FR)
  Receive Date: 20180320
  Receipt Date: 20180320
  Transmission Date: 20180509
  Serious: Yes (Hospitalization, Other)
  Sender: FDA-Public Use
  Company Number: PHHY2017FR131539

PATIENT
  Age: 75 Year
  Sex: Female

DRUGS (9)
  1. FLUDARABINE [Suspect]
     Active Substance: FLUDARABINE PHOSPHATE
     Indication: CHRONIC LYMPHOCYTIC LEUKAEMIA
     Dosage: 6 CYCLES
     Route: 065
  2. IBRUTINIB [Suspect]
     Active Substance: IBRUTINIB
     Dosage: 420 MG, QD
     Route: 065
  3. RITUXIMAB. [Suspect]
     Active Substance: RITUXIMAB
     Indication: CHRONIC LYMPHOCYTIC LEUKAEMIA
     Dosage: 500 MG/M2, QMO
     Route: 065
     Dates: start: 201503
  4. IBRUTINIB [Suspect]
     Active Substance: IBRUTINIB
     Indication: HEPATITIS B DNA INCREASED
  5. LEVOFLOXACIN. [Concomitant]
     Active Substance: LEVOFLOXACIN
     Route: 065
  6. CYCLOPHOSPHAMIDE. [Suspect]
     Active Substance: CYCLOPHOSPHAMIDE
     Dosage: 6 CYCLES
     Route: 065
  7. CYCLOPHOSPHAMIDE. [Suspect]
     Active Substance: CYCLOPHOSPHAMIDE
     Indication: CHRONIC LYMPHOCYTIC LEUKAEMIA
  8. IBRUTINIB [Suspect]
     Active Substance: IBRUTINIB
     Indication: CHRONIC LYMPHOCYTIC LEUKAEMIA
  9. LEVOFLOXACIN. [Concomitant]
     Active Substance: LEVOFLOXACIN
     Indication: SINUSITIS
     Route: 065

REACTIONS (8)
  - Headache [Unknown]
  - Eyelid ptosis [Not Recovered/Not Resolved]
  - Blindness [Not Recovered/Not Resolved]
  - Cavernous sinus thrombosis [Unknown]
  - Eye movement disorder [Not Recovered/Not Resolved]
  - Acute sinusitis [Unknown]
  - Mydriasis [Not Recovered/Not Resolved]
  - Aspergillus infection [Unknown]

NARRATIVE: CASE EVENT DATE: 20150301
